FAERS Safety Report 9659150 (Version 2)
Quarter: 2013Q4

REPORT INFORMATION
  Report Type: Report from Study
  Country: US (occurrence: US)
  Receive Date: 20131031
  Receipt Date: 20131107
  Transmission Date: 20140711
  Serious: Yes (Death)
  Sender: FDA-Public Use
  Company Number: GXBR2013US001870

PATIENT
  Age: 75 Year
  Sex: Female

DRUGS (1)
  1. ENOXAPARIN SODIUM [Suspect]
     Indication: DEEP VEIN THROMBOSIS
     Dosage: 40 MG, BID
     Route: 058

REACTIONS (1)
  - Pancreatic carcinoma metastatic [Fatal]
